FAERS Safety Report 7726879-3 (Version None)
Quarter: 2011Q3

REPORT INFORMATION
  Report Type: 
  Country: None (occurrence: None)
  Receive Date: 20110902
  Receipt Date: 20110822
  Transmission Date: 20111222
  Serious: Yes (Hospitalization)
  Sender: FDA-Public Use
  Company Number: FR-MERCK-1103FRA00117

PATIENT
  Age: 61 Year
  Sex: Male

DRUGS (12)
  1. SUFENTANIL CITRATE [Suspect]
     Indication: ANAESTHESIA
     Route: 042
     Dates: start: 20101123, end: 20101123
  2. COSOPT [Suspect]
     Route: 047
     Dates: start: 20101101, end: 20110121
  3. TRUSOPT [Suspect]
     Route: 047
     Dates: start: 20101101, end: 20110121
  4. SODIUM POLYSTYRENE SULFONATE [Concomitant]
     Route: 048
     Dates: end: 20101224
  5. DEXAMETHASONE AND TOBRAMYCIN [Suspect]
     Route: 047
     Dates: start: 20101126, end: 20101220
  6. PROPOFOL [Suspect]
     Indication: ANAESTHESIA
     Route: 042
     Dates: start: 20101123, end: 20101123
  7. CEFTRIAXONE SODIUM [Concomitant]
     Route: 042
     Dates: start: 20101217, end: 20101220
  8. GENTAMICIN [Concomitant]
     Route: 042
     Dates: start: 20101217, end: 20101220
  9. ACETAMINOPHEN [Concomitant]
     Route: 048
  10. ACETAZOLAMIDE [Suspect]
     Route: 048
     Dates: start: 20101123, end: 20101223
  11. DEXAMETHASONE AND TOBRAMYCIN [Suspect]
     Route: 047
     Dates: start: 20101224
  12. TRAVOPROST [Concomitant]
     Route: 047
     Dates: start: 20101101

REACTIONS (2)
  - DRUG RASH WITH EOSINOPHILIA AND SYSTEMIC SYMPTOMS [None]
  - CONJUNCTIVITIS [None]
